FAERS Safety Report 7994473-5 (Version None)
Quarter: 2011Q4

REPORT INFORMATION
  Report Type: 
  Country: None (occurrence: None)
  Receive Date: 20111220
  Receipt Date: 20111214
  Transmission Date: 20120403
  Serious: Yes (Hospitalization)
  Sender: FDA-Public Use
  Company Number: IN-AMGEN-INDCT2011022974

PATIENT
  Age: 45 Year
  Sex: Male
  Weight: 61 kg

DRUGS (7)
  1. PANITUMUMAB [Suspect]
     Indication: COLORECTAL CANCER METASTATIC
     Dosage: 366 MG, UNK
     Dates: start: 20110322
  2. PANTOPRAZOLE [Concomitant]
     Indication: GASTRITIS
     Route: 048
     Dates: start: 20110101, end: 20110805
  3. ALLEGRA [Concomitant]
     Indication: RASH
     Route: 048
     Dates: start: 20110405, end: 20110805
  4. SPASMO-PROXYVON [Concomitant]
     Indication: ABDOMINAL PAIN
     Dosage: UNK
     Route: 048
     Dates: start: 20110419, end: 20110805
  5. LASILACTONE [Concomitant]
     Indication: PLEURAL EFFUSION
     Route: 048
     Dates: start: 20110101, end: 20110805
  6. MULTI-VITAMINS [Concomitant]
     Indication: MEDICAL DIET
     Dosage: UNK
     Route: 048
     Dates: start: 20110101, end: 20110805
  7. PROTEIN SUPPLEMENTS [Concomitant]
     Indication: MEDICAL DIET
     Dosage: UNK
     Route: 048
     Dates: start: 20110322, end: 20110805

REACTIONS (1)
  - GASTROENTERITIS [None]
